FAERS Safety Report 5006748-2 (Version None)
Quarter: 2006Q2

REPORT INFORMATION
  Report Type: 
  Country: None (occurrence: None)
  Receive Date: 20060516
  Receipt Date: 20060503
  Transmission Date: 20061013
  Serious: Yes (Congenital Anomaly)
  Sender: FDA-Public Use
  Company Number: 2006061495

PATIENT
  Sex: 0

DRUGS (1)
  1. DELTACORTRIL [Suspect]
     Indication: BILIARY CIRRHOSIS
     Dosage: 10 MG (10 MG, 1 IN 1 D), PLACENTAL
     Route: 064
     Dates: start: 20040101

REACTIONS (3)
  - CONGENITAL BLADDER ANOMALY [None]
  - DRUG EXPOSURE DURING PREGNANCY [None]
  - URINARY BLADDER ATROPHY [None]
